FAERS Safety Report 6271982-0 (Version None)
Quarter: 2009Q3

REPORT INFORMATION
  Report Type: 
  Country: None (occurrence: None)
  Receive Date: 20090717
  Receipt Date: 20090707
  Transmission Date: 20100115
  Serious: Yes (Hospitalization, Other)
  Sender: FDA-Public Use
  Company Number: DE-ABBOTT-09P-062-0583694-00

PATIENT

DRUGS (10)
  1. AKINETON [Suspect]
     Indication: DRUG USE FOR UNKNOWN INDICATION
  2. DOMINAL [Concomitant]
     Indication: DRUG USE FOR UNKNOWN INDICATION
     Dates: end: 20090204
  3. SEROXAT [Concomitant]
     Indication: DRUG USE FOR UNKNOWN INDICATION
  4. SEROQUEL [Concomitant]
     Indication: DRUG USE FOR UNKNOWN INDICATION
  5. SEROQUEL [Concomitant]
     Dosage: SLIGHT INCREASE
  6. HALDOL [Concomitant]
     Indication: DRUG USE FOR UNKNOWN INDICATION
  7. HALDOL [Concomitant]
     Dosage: REDUCTION
     Dates: start: 20090205, end: 20090217
  8. LORAZEPAM [Concomitant]
     Indication: DRUG USE FOR UNKNOWN INDICATION
  9. BISOPROLOL FUMARATE [Concomitant]
     Indication: DRUG USE FOR UNKNOWN INDICATION
  10. SIMVASTIN [Concomitant]
     Indication: DRUG USE FOR UNKNOWN INDICATION

REACTIONS (8)
  - COGNITIVE DISORDER [None]
  - DELUSIONAL DISORDER, UNSPECIFIED TYPE [None]
  - DEPRESSION [None]
  - DISORIENTATION [None]
  - MEMORY IMPAIRMENT [None]
  - RESTLESSNESS [None]
  - SOMATOFORM DISORDER [None]
  - SUICIDAL IDEATION [None]
